FAERS Safety Report 24533725 (Version 1)
Quarter: 2024Q4

REPORT INFORMATION
  Report Type: Report from Study
  Country: US (occurrence: US)
  Receive Date: 20241022
  Receipt Date: 20241022
  Transmission Date: 20250114
  Serious: Yes (Other)
  Sender: GILEAD
  Company Number: US-GILEAD-2024-0691023

PATIENT
  Age: 25 Year
  Sex: Male

DRUGS (11)
  1. AZTREONAM LYSINE [Suspect]
     Active Substance: AZTREONAM LYSINE
     Indication: Cystic fibrosis lung
     Dosage: 75 MG,INHALE 1 VIAL (75MG) TOTAL BY NEBULIZATION EVERY MORNING AFTERNOON AND EVENING FOR 28 DAYS
     Route: 055
     Dates: start: 20190326
  2. ALBUTEROL SULFATE [Concomitant]
     Active Substance: ALBUTEROL SULFATE
  3. AZITHROMYCIN [Concomitant]
     Active Substance: AZITHROMYCIN
  4. CREON [Concomitant]
     Active Substance: PANCRELIPASE AMYLASE\PANCRELIPASE LIPASE\PANCRELIPASE PROTEASE
  5. VITAMIN D3 [Concomitant]
     Active Substance: CHOLECALCIFEROL
  6. SODIUM CHLORIDE [Concomitant]
     Active Substance: SODIUM CHLORIDE
  7. MIRALAX [Concomitant]
     Active Substance: POLYETHYLENE GLYCOL 3350
  8. VITAMINS [Concomitant]
     Active Substance: VITAMINS
  9. PULMOZYME [Concomitant]
     Active Substance: DORNASE ALFA
  10. SYMDEKO [Concomitant]
     Active Substance: IVACAFTOR\TEZACAFTOR
  11. TOBI PODHALER [Concomitant]
     Active Substance: TOBRAMYCIN

REACTIONS (2)
  - Cystic fibrosis gastrointestinal disease [Unknown]
  - Pain [Unknown]
